FAERS Safety Report 19979944 (Version 2)
Quarter: 2021Q4

REPORT INFORMATION
  Report Type: Spontaneous
  Country: GB (occurrence: GB)
  Receive Date: 20211021
  Receipt Date: 20211102
  Transmission Date: 20220303
  Serious: Yes (Other)
  Sender: FDA-Public Use
  Company Number: None

PATIENT
  Age: 77 Year
  Sex: Male
  Weight: 73.02 kg

DRUGS (4)
  1. OMEPRAZOLE [Suspect]
     Active Substance: OMEPRAZOLE
     Indication: Prophylaxis
     Dosage: 20MG
     Route: 050
     Dates: start: 20210915, end: 20211004
  2. BORTEZOMIB [Suspect]
     Active Substance: BORTEZOMIB
     Indication: Ill-defined disorder
  3. DARATUMUMAB [Suspect]
     Active Substance: DARATUMUMAB
     Indication: Ill-defined disorder
  4. DEXAMETHASONE [Concomitant]
     Active Substance: DEXAMETHASONE
     Indication: Ill-defined disorder

REACTIONS (1)
  - Constipation [Recovered/Resolved]

NARRATIVE: CASE EVENT DATE: 20211003
